FAERS Safety Report 6011088-9 (Version None)
Quarter: 2008Q4

REPORT INFORMATION
  Report Type: 
  Country: None (occurrence: None)
  Receive Date: 20081218
  Receipt Date: 20081208
  Transmission Date: 20090506
  Serious: Yes (Other)
  Sender: FDA-Public Use
  Company Number: US-AVENTIS-200818415US

PATIENT
  Sex: Female

DRUGS (6)
  1. LANTUS [Suspect]
     Route: 058
     Dates: start: 20080101
  2. GLYBURIDE [Concomitant]
     Dosage: DOSE: UNK
  3. LYRICA [Concomitant]
     Dosage: DOSE: UNK
  4. PRIMIDONE [Concomitant]
     Dosage: DOSE: UNK
  5. DOXYCYCLINE [Concomitant]
     Dosage: DOSE: UNK
  6. TIROXCAN [Concomitant]
     Dosage: DOSE: UNK

REACTIONS (2)
  - GLAUCOMA [None]
  - INJECTION SITE IRRITATION [None]
